FAERS Safety Report 6135378-4 (Version None)
Quarter: 2009Q1

REPORT INFORMATION
  Report Type: 
  Country: None (occurrence: None)
  Receive Date: 20090327
  Receipt Date: 20090309
  Transmission Date: 20090719
  Serious: Yes (Other)
  Sender: FDA-Public Use
  Company Number: US-PFIZER INC-2008099659

PATIENT
  Sex: Male

DRUGS (5)
  1. GLUCOTROL XL [Suspect]
     Indication: TYPE 2 DIABETES MELLITUS
     Dosage: 20 MG, 2X/DAY
     Route: 048
     Dates: start: 20081107
  2. GLIPIZIDE [Suspect]
     Dosage: 10 MG, UNK
  3. GLIPIZIDE [Suspect]
     Dosage: 2.5 MG, UNK
     Dates: start: 20081107
  4. LISINOPRIL [Concomitant]
     Dosage: 10 MG, 1X/DAY
     Route: 048
  5. METFORMIN [Concomitant]
     Dosage: 500 MG, FREQUENCY: DAILY
     Route: 048

REACTIONS (11)
  - ABDOMINAL PAIN UPPER [None]
  - ASTHENOPIA [None]
  - BLOOD GLUCOSE INCREASED [None]
  - EYE PAIN [None]
  - EYELID PTOSIS [None]
  - FATIGUE [None]
  - FEELING ABNORMAL [None]
  - MULTI-ORGAN DISORDER [None]
  - PALLOR [None]
  - SWELLING FACE [None]
  - VISUAL IMPAIRMENT [None]
